FAERS Safety Report 16496628 (Version 5)
Quarter: 2019Q3

REPORT INFORMATION
  Report Type: Spontaneous
  Country: LB (occurrence: LB)
  Receive Date: 20190628
  Receipt Date: 20190912
  Transmission Date: 20191004
  Serious: Yes (Death, Life-Threatening, Hospitalization, Other)
  Sender: FDA-Public Use
  Company Number: LB-SEATTLE GENETICS-2019SGN02234

PATIENT
  Age: 48 Year
  Sex: Male
  Weight: 79 kg

DRUGS (5)
  1. ADCETRIS [Suspect]
     Active Substance: BRENTUXIMAB VEDOTIN
     Indication: ANAPLASTIC LARGE CELL LYMPHOMA T- AND NULL-CELL TYPES
     Dosage: 1.8 MILLIGRAM/KILOGRAM, Q3WEEKS
     Route: 042
     Dates: start: 20190130, end: 20190508
  2. ENDOXAN                            /00021101/ [Concomitant]
     Active Substance: CYCLOPHOSPHAMIDE
     Indication: ANAPLASTIC LARGE-CELL LYMPHOMA
     Dosage: 1200 MILLIGRAM, Q3WEEKS
     Route: 042
     Dates: start: 20190130, end: 20190508
  3. PREDNISONE. [Concomitant]
     Active Substance: PREDNISONE
     Indication: ANAPLASTIC LARGE-CELL LYMPHOMA
     Dosage: UNK
     Route: 065
     Dates: start: 201901
  4. ZOMETA [Concomitant]
     Active Substance: ZOLEDRONIC ACID
     Indication: ANAPLASTIC LARGE-CELL LYMPHOMA
     Dosage: 4 MILLIGRAM
     Route: 042
     Dates: start: 20190130, end: 20190508
  5. DOXOTIL [Concomitant]
     Indication: ANAPLASTIC LARGE-CELL LYMPHOMA
     Dosage: 80 MILLIGRAM, Q3WEEKS
     Route: 042
     Dates: start: 20190130, end: 20190508

REACTIONS (2)
  - Off label use [Unknown]
  - Progressive multifocal leukoencephalopathy [Fatal]

NARRATIVE: CASE EVENT DATE: 20190501
